FAERS Safety Report 20092124 (Version 3)
Quarter: 2022Q1

REPORT INFORMATION
  Report Type: Report from Study
  Country: BY (occurrence: BY)
  Receive Date: 20211119
  Receipt Date: 20220105
  Transmission Date: 20220424
  Serious: Yes (Hospitalization)
  Sender: FDA-Public Use
  Company Number: BG-CELGENE-BGR-20211100542

PATIENT
  Sex: Female

DRUGS (11)
  1. OZANIMOD [Suspect]
     Active Substance: OZANIMOD
     Indication: Relapsing multiple sclerosis
     Route: 048
     Dates: start: 20170208, end: 20211108
  2. OZANIMOD [Suspect]
     Active Substance: OZANIMOD
     Route: 048
     Dates: start: 20211109
  3. ETHAMSYLATE [Concomitant]
     Active Substance: ETHAMSYLATE
     Indication: Epistaxis
     Dosage: 250 MILLIGRAM
     Route: 048
  4. QUIFENADINE [Concomitant]
     Active Substance: QUIFENADINE
     Indication: Multiple sclerosis relapse
     Dosage: 500 MILLIGRAM
     Route: 048
  5. DEXAMETHASONE [Concomitant]
     Active Substance: DEXAMETHASONE
     Indication: Multiple sclerosis relapse
     Dosage: 6 MEDICAL DROP
     Route: 047
  6. METHYLPREDNISOLONE [Concomitant]
     Active Substance: METHYLPREDNISOLONE
     Indication: Multiple sclerosis relapse
     Dosage: 1 GRAM
     Route: 041
  7. SODIUM CHLORIDE [Concomitant]
     Active Substance: SODIUM CHLORIDE
     Indication: Unevaluable therapy
     Dosage: 200 MILLILITRE
     Route: 041
     Dates: start: 20211101, end: 20211107
  8. SOLU-MEDROL [Concomitant]
     Active Substance: METHYLPREDNISOLONE SODIUM SUCCINATE
     Indication: Product used for unknown indication
     Dosage: UNKNOWN
     Route: 065
  9. NEVANAC [Concomitant]
     Active Substance: NEPAFENAC
     Indication: Product used for unknown indication
     Dosage: UNKNOWN
     Route: 047
  10. ASPICARD [Concomitant]
     Indication: Product used for unknown indication
     Route: 048
  11. CYTOFLAVIN [Concomitant]
     Indication: Product used for unknown indication
     Route: 048

REACTIONS (2)
  - Interstitial lung disease [Recovered/Resolved]
  - COVID-19 [Recovered/Resolved]

NARRATIVE: CASE EVENT DATE: 20211101
